FAERS Safety Report 25656080 (Version 1)
Quarter: 2025Q3

REPORT INFORMATION
  Report Type: Spontaneous
  Country: CN (occurrence: CN)
  Receive Date: 20250807
  Receipt Date: 20250807
  Transmission Date: 20251020
  Serious: Yes (Other)
  Sender: GILEAD
  Company Number: CN-GILEAD-2025-0723357

PATIENT

DRUGS (1)
  1. VEMLIDY [Suspect]
     Active Substance: TENOFOVIR ALAFENAMIDE FUMARATE
     Indication: Hepatitis B
     Route: 065

REACTIONS (6)
  - Nephritis [Unknown]
  - Renal injury [Unknown]
  - Red blood cells urine positive [Unknown]
  - Pollakiuria [Unknown]
  - Blood creatinine abnormal [Unknown]
  - Fatigue [Unknown]
